FAERS Safety Report 17813829 (Version 3)
Quarter: 2020Q2

REPORT INFORMATION
  Report Type: Spontaneous
  Country: NL (occurrence: DE)
  Receive Date: 20200521
  Receipt Date: 20200526
  Transmission Date: 20200714
  Serious: Yes (Other)
  Sender: FDA-Public Use
  Company Number: NL-PFIZER INC-2020200628

PATIENT
  Age: 72 Year
  Sex: Male
  Weight: 97 kg

DRUGS (9)
  1. ASPIRIN. [Suspect]
     Active Substance: ASPIRIN
     Indication: ANGINA PECTORIS
     Dosage: 100 MG, 1X/DAY (LONG-TERM)
     Route: 048
  2. PANTOPRAZOLE [Suspect]
     Active Substance: PANTOPRAZOLE
     Indication: GASTROOESOPHAGEAL REFLUX DISEASE
     Dosage: 40 MG, 1X/DAY (1 X 40 MG/DAY LONG-TERM)
     Route: 048
  3. ABASAGLAR [Suspect]
     Active Substance: INSULIN GLARGINE
     Indication: DIABETES MELLITUS
     Dosage: 11 IU, 1X/DAY
     Route: 058
  4. JANUMET [Suspect]
     Active Substance: METFORMIN HYDROCHLORIDE\SITAGLIPTIN PHOSPHATE
     Indication: TYPE 2 DIABETES MELLITUS
     Dosage: 50 MG, 1X/DAY (50 MG REFER TO SITAGLIPTIN, THE DOSE WAS 1 TABLET DAILY, LONG-TERM)
     Route: 048
  5. CANDESARTAN. [Suspect]
     Active Substance: CANDESARTAN
     Indication: HYPERTONIA
     Dosage: 8 MG, 1X/DAY (LONG-TERM)
     Route: 048
  6. SYZYGIUM CUMINI TINCTURE [Suspect]
     Active Substance: HERBALS
     Indication: TYPE 2 DIABETES MELLITUS
     Dosage: 5 DROP (5 DROP, EVERY 3 DAYS)
     Route: 048
     Dates: start: 20200127, end: 20200130
  7. ALLOPURINOL. [Concomitant]
     Active Substance: ALLOPURINOL
     Indication: HYPERURICAEMIA
     Dosage: 300 MG, 1X/DAY
     Route: 048
  8. ATORVASTATIN CALCIUM. [Suspect]
     Active Substance: ATORVASTATIN CALCIUM
     Indication: HYPERCHOLESTEROLAEMIA
     Dosage: 20 MG, 1X/DAY (1 X 20 MG DAILY, LONG-TERM)
     Route: 048
  9. APIXABAN [Concomitant]
     Active Substance: APIXABAN
     Indication: ISCHAEMIA
     Dosage: 5 MG, ALTERNATE DAY (2 X 5 MG DAILY, LONG-TERM)
     Route: 048

REACTIONS (2)
  - Myalgia [Recovered/Resolved]
  - Muscle rupture [Recovered/Resolved]

NARRATIVE: CASE EVENT DATE: 20200129
